FAERS Safety Report 6468261-5 (Version None)
Quarter: 2009Q4

REPORT INFORMATION
  Report Type: 
  Country: None (occurrence: None)
  Receive Date: 20091130
  Receipt Date: 20091121
  Transmission Date: 20100525
  Serious: Yes (Other)
  Sender: FDA-Public Use
  Company Number: 1022556-2009-00242

PATIENT
  Sex: Female

DRUGS (1)
  1. ACT TOTAL CARE FRESH MINT 18 OZ [Suspect]
     Indication: DENTAL DISORDER PROPHYLAXIS
     Dosage: 10ML, HS, ORAL RINSE
     Route: 048
     Dates: start: 20091117

REACTIONS (6)
  - BLISTER [None]
  - CHEILITIS [None]
  - HAEMORRHAGE [None]
  - LIP BLISTER [None]
  - RASH [None]
  - STOMATITIS [None]
